FAERS Safety Report 21228973 (Version 1)
Quarter: 2022Q3

REPORT INFORMATION
  Report Type: Spontaneous
  Country: US (occurrence: None)
  Receive Date: 20220818
  Receipt Date: 20220818
  Transmission Date: 20221026
  Serious: Yes (Other)
  Sender: FDA-Public Use
  Company Number: US-ROCHE-3157713

PATIENT
  Age: 36 Year
  Sex: Female

DRUGS (2)
  1. CAPECITABINE [Suspect]
     Active Substance: CAPECITABINE
     Indication: Product used for unknown indication
     Route: 048
  2. TUKYSA [Concomitant]
     Active Substance: TUCATINIB
     Indication: Breast cancer female
     Route: 065

REACTIONS (6)
  - Muscle atrophy [Unknown]
  - Asthenia [Unknown]
  - Feeling abnormal [Unknown]
  - Joint swelling [Unknown]
  - Peripheral swelling [Unknown]
  - Blindness transient [Unknown]

NARRATIVE: CASE EVENT DATE: 20220725
